FAERS Safety Report 7938866-0 (Version None)
Quarter: 2011Q4

REPORT INFORMATION
  Report Type: 
  Country: None (occurrence: None)
  Receive Date: 20111124
  Receipt Date: 20111116
  Transmission Date: 20120403
  Serious: Yes (Death, Life-Threatening, Hospitalization, Other)
  Sender: FDA-Public Use
  Company Number: ES-BRISTOL-MYERS SQUIBB COMPANY-16235418

PATIENT
  Age: 50 Year
  Sex: Male

DRUGS (5)
  1. SUMIAL [Concomitant]
     Indication: HIV INFECTION
     Dosage: TOTAL DOSE 140MG
     Route: 048
     Dates: start: 20101029, end: 20101206
  2. REYATAZ [Suspect]
     Indication: HIV INFECTION
     Dosage: TOTAL DOSE 400MG
     Route: 048
     Dates: start: 20070101, end: 20101206
  3. ESOMEPRAZOLE [Suspect]
     Indication: PROPHYLAXIS
     Route: 048
     Dates: start: 20101029, end: 20101202
  4. DIAZEPAM [Concomitant]
     Route: 048
     Dates: start: 20090101, end: 20101206
  5. TRUVADA [Suspect]
     Indication: HIV INFECTION
     Route: 048
     Dates: start: 20080101, end: 20101206

REACTIONS (4)
  - HEPATITIS C [None]
  - HEPATIC NEOPLASM MALIGNANT [None]
  - CHOLESTASIS [None]
  - HEPATIC CIRRHOSIS [None]
